FAERS Safety Report 13034045 (Version 1)
Quarter: 2016Q4

REPORT INFORMATION
  Report Type: Spontaneous
  Country: US (occurrence: US)
  Receive Date: 20161216
  Receipt Date: 20161216
  Transmission Date: 20170207
  Serious: Yes (Other)
  Sender: FDA-Public Use
  Company Number: US-DEPOMED, INC.-US-2016DEP012970

PATIENT

DRUGS (4)
  1. IBUPROFEN. [Concomitant]
     Active Substance: IBUPROFEN
     Indication: PAIN
     Dosage: UNK
     Route: 048
  2. STATIN                             /00084401/ [Concomitant]
     Active Substance: THIABENDAZOLE
     Indication: BLOOD CHOLESTEROL
     Dosage: UNK
     Route: 048
  3. CELEBREX [Concomitant]
     Active Substance: CELECOXIB
     Indication: PAIN IN EXTREMITY
     Dosage: UNK
  4. NUCYNTA [Suspect]
     Active Substance: TAPENTADOL HYDROCHLORIDE
     Indication: PAIN
     Dosage: UNK
     Dates: start: 2002, end: 2002

REACTIONS (4)
  - Pharyngeal oedema [Unknown]
  - Respiratory distress [Unknown]
  - Hypersensitivity [Unknown]
  - Euphoric mood [Unknown]

NARRATIVE: CASE EVENT DATE: 2002
